FAERS Safety Report 17803925 (Version 1)
Quarter: 2020Q2

REPORT INFORMATION
  Report Type: Spontaneous
  Country: FR (occurrence: FR)
  Receive Date: 20200519
  Receipt Date: 20200519
  Transmission Date: 20200714
  Serious: Yes (Other)
  Sender: FDA-Public Use
  Company Number: FR-MYLANLABS-2020M1049126

PATIENT
  Age: 87 Year
  Sex: Male

DRUGS (2)
  1. CLOXACILLINE EG [Suspect]
     Active Substance: CLOXACILLIN SODIUM
     Indication: MEDICAL DEVICE SITE ABSCESS
     Dosage: UNK
     Route: 048
     Dates: start: 20200402, end: 20200421
  2. LANSOPRAZOLO MYLAN [Suspect]
     Active Substance: LANSOPRAZOLE
     Indication: PROPHYLAXIS
     Dosage: 15 MILLIGRAM, QD
     Route: 048
     Dates: start: 20200402, end: 20200417

REACTIONS (1)
  - Pancytopenia [Recovering/Resolving]

NARRATIVE: CASE EVENT DATE: 20200417
